FAERS Safety Report 21453239 (Version 1)
Quarter: 2022Q4

REPORT INFORMATION
  Report Type: Spontaneous
  Country: US (occurrence: None)
  Receive Date: 20221007
  Receipt Date: 20221007
  Transmission Date: 20230113
  Serious: No
  Sender: FDA-Public Use
  Company Number: None

PATIENT

DRUGS (2)
  1. MICROGESTIN FE 1/20 [Suspect]
     Active Substance: ETHINYL ESTRADIOL\NORETHINDRONE ACETATE
  2. MICROGESTIN 1/20 [Suspect]
     Active Substance: ETHINYL ESTRADIOL\NORETHINDRONE ACETATE

REACTIONS (7)
  - Transcription medication error [None]
  - Product packaging issue [None]
  - Product prescribing error [None]
  - Product name confusion [None]
  - Product name confusion [None]
  - Product dispensing error [None]
  - Wrong product administered [None]
